FAERS Safety Report 5020114-5 (Version None)
Quarter: 2006Q2

REPORT INFORMATION
  Report Type: 
  Country: None (occurrence: None)
  Receive Date: 20060601
  Receipt Date: 20060517
  Transmission Date: 20061013
  Serious: Yes (Other)
  Sender: FDA-Public Use
  Company Number: 2006BH009331

PATIENT
  Age: 20 Year
  Sex: Female

DRUGS (4)
  1. HEPARIN SODIUM [Suspect]
     Indication: ANGIOGRAM
     Dosage: IV
     Route: 042
  2. WARFARIN SODIUM [Concomitant]
  3. AMLODIPINE [Concomitant]
  4. ENALAPRIL [Concomitant]

REACTIONS (17)
  - ACUTE RESPIRATORY DISTRESS SYNDROME [None]
  - ANTIPHOSPHOLIPID SYNDROME [None]
  - CEREBRAL VENOUS THROMBOSIS [None]
  - GENERAL PHYSICAL HEALTH DETERIORATION [None]
  - GRAND MAL CONVULSION [None]
  - HAEMODIALYSIS [None]
  - HAEMOLYTIC ANAEMIA [None]
  - HEMIPARESIS [None]
  - HEPARIN-INDUCED THROMBOCYTOPENIA [None]
  - HEPATIC INFARCTION [None]
  - LUNG CONSOLIDATION [None]
  - MARROW HYPERPLASIA [None]
  - PLASMAPHERESIS [None]
  - PLEURAL EFFUSION [None]
  - RENAL FAILURE ACUTE [None]
  - RESPIRATORY FAILURE [None]
  - THROMBOCYTOPENIA [None]
